FAERS Safety Report 24295091 (Version 4)
Quarter: 2024Q4

REPORT INFORMATION
  Report Type: Spontaneous
  Country: US (occurrence: US)
  Receive Date: 20240907
  Receipt Date: 20241106
  Transmission Date: 20250115
  Serious: Yes (Death, Life-Threatening, Other)
  Sender: AMGEN
  Company Number: US-AMGEN-USASP2024175914

PATIENT
  Age: 27 Year
  Sex: Male

DRUGS (1)
  1. IMDELLTRA [Suspect]
     Active Substance: TARLATAMAB-DLLE
     Indication: Small cell lung cancer extensive stage
     Dosage: 1 MILLIGRAM, C1D1
     Route: 042
     Dates: start: 202408, end: 202408

REACTIONS (4)
  - Death [Fatal]
  - Cytokine release syndrome [Recovered/Resolved]
  - Immune effector cell-associated neurotoxicity syndrome [Recovered/Resolved]
  - Cardiac arrest [Unknown]

NARRATIVE: CASE EVENT DATE: 20240101
